FAERS Safety Report 8073626-4 (Version None)
Quarter: 2011Q4

REPORT INFORMATION
  Report Type: 
  Country: None (occurrence: None)
  Receive Date: 20111221
  Receipt Date: 20110323
  Transmission Date: 20120403
  Serious: Yes (Other)
  Sender: FDA-Public Use
  Company Number: PHEH2009US18848

PATIENT
  Age: 32 Year
  Sex: Male
  Weight: 67.2 kg

DRUGS (4)
  1. VICODIN [Concomitant]
  2. BLOOD TRANSFUSION, AUXILIARY PRODUCTS (NO INGREDIENTS/SUBSTANCES) [Concomitant]
  3. EXJADE [Suspect]
     Indication: SICKLE CELL ANAEMIA
     Dosage: 1500 MG, ORAL
     Route: 048
  4. HYDROXYUREA [Concomitant]

REACTIONS (2)
  - ABDOMINAL PAIN UPPER [None]
  - ABDOMINAL DISCOMFORT [None]
